FAERS Safety Report 5533751-6 (Version None)
Quarter: 2007Q4

REPORT INFORMATION
  Report Type: 
  Country: None (occurrence: None)
  Receive Date: 20071204
  Receipt Date: 20071128
  Transmission Date: 20080405
  Serious: No
  Sender: FDA-Public Use
  Company Number: US-BOEHRINGER INGELHEIM PHARMACEUTICALS, INC.-2007-BP-25289BP

PATIENT
  Sex: Female

DRUGS (10)
  1. SPIRIVA [Suspect]
     Indication: ASTHMA
     Route: 055
     Dates: start: 20071028
  2. ALBUTEROL [Concomitant]
  3. LANTUS [Concomitant]
  4. NOVOLOG [Concomitant]
  5. ALLOPURINOL [Concomitant]
  6. LEVOTHYROXINE SODIUM [Concomitant]
  7. EFFEXOR [Concomitant]
  8. HYDROCHLOROTHIAZIDE [Concomitant]
  9. SOTALOL HYDROCHLORIDE [Concomitant]
  10. ULTRAM [Concomitant]

REACTIONS (1)
  - DRUG INEFFECTIVE [None]
